FAERS Safety Report 10593696 (Version 1)
Quarter: 2014Q4

REPORT INFORMATION
  Report Type: Spontaneous
  Country: US (occurrence: US)
  Receive Date: 20141119
  Receipt Date: 20141119
  Transmission Date: 20150529
  Serious: Yes (Hospitalization, Other)
  Sender: FDA-Public Use
  Company Number: US-GILEAD-2014-0123116

PATIENT
  Age: 82 Year
  Sex: Male

DRUGS (2)
  1. REVLIMID [Suspect]
     Active Substance: LENALIDOMIDE
     Indication: PRODUCT USED FOR UNKNOWN INDICATION
     Dosage: UNK
     Route: 065
     Dates: end: 20141107
  2. LETAIRIS [Suspect]
     Active Substance: AMBRISENTAN
     Indication: PLASMA CELL MYELOMA
     Dosage: 25 MG, QD
     Route: 065
     Dates: start: 20140830, end: 20141107

REACTIONS (2)
  - Atrial fibrillation [Not Recovered/Not Resolved]
  - Mental status changes [Not Recovered/Not Resolved]

NARRATIVE: CASE EVENT DATE: 20141107
